FAERS Safety Report 4916113-1 (Version None)
Quarter: 2006Q1

REPORT INFORMATION
  Report Type: 
  Country: None (occurrence: None)
  Receive Date: 20060113
  Receipt Date: 20051003
  Transmission Date: 20060701
  Serious: No
  Sender: FDA-Public Use
  Company Number: 2005SP003364

PATIENT
  Age: 71 Year
  Sex: Female
  Weight: 52.1637 kg

DRUGS (9)
  1. LUNESTA [Suspect]
     Indication: MIDDLE INSOMNIA
     Dosage: 2 MG,HS, ORAL
     Route: 048
     Dates: start: 20050929, end: 20050930
  2. TOPROL-XL [Concomitant]
  3. ACIPHEX [Concomitant]
  4. LOVASTATIN [Concomitant]
  5. MOBIC [Concomitant]
  6. MULTI-VITAMIN [Concomitant]
  7. CALCIUM GLUCONATE [Concomitant]
  8. TYLENOL (CAPLET) [Concomitant]
  9. DALMANE [Concomitant]

REACTIONS (4)
  - DRUG INEFFECTIVE [None]
  - DYSPEPSIA [None]
  - INSOMNIA [None]
  - IRRITABILITY [None]
